FAERS Safety Report 5603541-4 (Version None)
Quarter: 2008Q1

REPORT INFORMATION
  Report Type: 
  Country: None (occurrence: None)
  Receive Date: 20080122
  Receipt Date: 20080107
  Transmission Date: 20080703
  Serious: Yes (Death, Hospitalization)
  Sender: FDA-Public Use
  Company Number: DSA_31248_2008

PATIENT
  Age: 45 Year
  Sex: Female

DRUGS (1)
  1. DILTIAZEM HCL [Suspect]

REACTIONS (4)
  - CARDIAC ARREST [None]
  - COMPLETED SUICIDE [None]
  - POISONING [None]
  - RESPIRATORY ARREST [None]
